FAERS Safety Report 17567791 (Version 1)
Quarter: 2020Q1

REPORT INFORMATION
  Report Type: Spontaneous
  Country: CA (occurrence: CA)
  Receive Date: 20200320
  Receipt Date: 20200320
  Transmission Date: 20200409
  Serious: Yes (Other)
  Sender: FDA-Public Use
  Company Number: NVSC2020CA078781

PATIENT
  Age: 62 Year
  Sex: Female

DRUGS (1)
  1. LAMISIL [Suspect]
     Active Substance: TERBINAFINE HYDROCHLORIDE
     Indication: ONYCHOMYCOSIS
     Dosage: 250 MG
     Route: 065
     Dates: start: 20200124, end: 20200219

REACTIONS (16)
  - Lupus-like syndrome [Unknown]
  - Nausea [Unknown]
  - Fatigue [Unknown]
  - Insomnia [Unknown]
  - Arthritis reactive [Unknown]
  - Peripheral swelling [Unknown]
  - Hypoaesthesia [Unknown]
  - Arthralgia [Unknown]
  - Joint swelling [Unknown]
  - Headache [Unknown]
  - Dyspepsia [Unknown]
  - Gait disturbance [Unknown]
  - Erythema [Unknown]
  - Myalgia [Unknown]
  - Pruritus [Unknown]
  - Pain in extremity [Unknown]

NARRATIVE: CASE EVENT DATE: 20200218
